FAERS Safety Report 10735894 (Version 3)
Quarter: 2018Q4

REPORT INFORMATION
  Report Type: Report from Study
  Country: US (occurrence: US)
  Receive Date: 20150126
  Receipt Date: 20181107
  Transmission Date: 20190204
  Serious: Yes (Other)
  Sender: FDA-Public Use
  Company Number: US-ROCHE-1525768

PATIENT
  Age: 10 Year
  Sex: Male
  Weight: 34.4 kg

DRUGS (3)
  1. NUTROPIN AQ [Suspect]
     Active Substance: SOMATROPIN
     Route: 058
  2. NUTROPIN AQ [Suspect]
     Active Substance: SOMATROPIN
     Dosage: NUSPIN 20, 0.2 MG DOSING INCREMENTS, 7 INJECTIONS PER WEEK, DISPENSED 1 MONTH SUPPLY AND REFILLED 4
     Route: 058
  3. NUTROPIN AQ [Suspect]
     Active Substance: SOMATROPIN
     Indication: GROWTH RETARDATION
     Route: 058
     Dates: end: 20141202

REACTIONS (12)
  - Idiopathic intracranial hypertension [Unknown]
  - Arthralgia [Unknown]
  - Neck pain [Unknown]
  - Thyroxine free increased [Unknown]
  - Headache [Recovered/Resolved]
  - Intraocular pressure increased [Unknown]
  - Hepatosplenomegaly [Unknown]
  - Idiopathic intracranial hypertension [Unknown]
  - Myalgia [Unknown]
  - Anti-thyroid antibody positive [Unknown]
  - Papilloedema [Unknown]
  - Intracranial pressure increased [Unknown]

NARRATIVE: CASE EVENT DATE: 201411
